FAERS Safety Report 6692492-2 (Version None)
Quarter: 2010Q2

REPORT INFORMATION
  Report Type: 
  Country: None (occurrence: None)
  Receive Date: 20100422
  Receipt Date: 20100414
  Transmission Date: 20101027
  Serious: Yes (Hospitalization)
  Sender: FDA-Public Use
  Company Number: B0621421A

PATIENT
  Sex: Female

DRUGS (7)
  1. PAXIL [Suspect]
     Dosage: 10MG PER DAY
     Route: 048
     Dates: end: 20080706
  2. NORVASC [Suspect]
     Indication: HYPERTENSION
     Dosage: 2.5MG PER DAY
     Route: 048
     Dates: start: 20080609, end: 20080706
  3. OLMESARTAN MEDOXOMIL [Concomitant]
     Indication: HYPERTENSION
     Dosage: 10MG PER DAY
     Route: 048
     Dates: start: 20080512
  4. FUROSEMIDE [Concomitant]
     Indication: HYPERTENSION
     Dosage: 20MG PER DAY
     Route: 048
     Dates: start: 20080110, end: 20081019
  5. METHYCOBAL [Concomitant]
     Indication: OSTEOARTHRITIS
     Dosage: 1500MCG PER DAY
     Route: 048
  6. ETHYL ICOSAPENTATE [Concomitant]
     Indication: OSTEOARTHRITIS
     Dosage: 1800MG PER DAY
     Route: 048
  7. CHINESE MEDICINE [Concomitant]
     Indication: OSTEOARTHRITIS
     Dosage: 22.5MG PER DAY
     Route: 048

REACTIONS (1)
  - PARKINSONISM [None]
